FAERS Safety Report 5003729-X (Version None)
Quarter: 2006Q2

REPORT INFORMATION
  Report Type: 
  Country: None (occurrence: None)
  Receive Date: 20060516
  Receipt Date: 20050721
  Transmission Date: 20061013
  Serious: Yes (Hospitalization)
  Sender: FDA-Public Use
  Company Number: CA-MERCK-0507CAN00128

PATIENT
  Age: 65 Year
  Sex: Male

DRUGS (2)
  1. PROSCAR [Suspect]
     Indication: BENIGN PROSTATIC HYPERPLASIA
     Route: 048
     Dates: start: 20050428
  2. TAMSULOSIN HYDROCHLORIDE [Suspect]
     Indication: BENIGN PROSTATIC HYPERPLASIA
     Route: 048

REACTIONS (5)
  - DIZZINESS [None]
  - LOSS OF CONSCIOUSNESS [None]
  - MUSCLE SPASMS [None]
  - MYALGIA [None]
  - SYNCOPE [None]
